FAERS Safety Report 9399837 (Version 4)
Quarter: 2013Q3

REPORT INFORMATION
  Report Type: Report from Study
  Country: JP (occurrence: JP)
  Receive Date: 20130715
  Receipt Date: 20130925
  Transmission Date: 20140515
  Serious: Yes (Hospitalization, Other)
  Sender: FDA-Public Use
  Company Number: PHHY2013JP074070

PATIENT
  Age: 40 Year
  Sex: Female

DRUGS (21)
  1. LEPONEX / CLOZARIL [Suspect]
     Indication: SCHIZOPHRENIA, DISORGANISED TYPE
     Dosage: 12.5 MG, UNK
     Route: 048
     Dates: start: 20130621, end: 20130621
  2. LEPONEX / CLOZARIL [Suspect]
     Dosage: 25 MG, UNK
     Route: 048
     Dates: start: 20130622, end: 20130623
  3. LEPONEX / CLOZARIL [Suspect]
     Dosage: 50 MG, UNK
     Route: 048
     Dates: start: 20130624, end: 20130625
  4. LEPONEX / CLOZARIL [Suspect]
     Dosage: 75 MG, UNK
     Route: 048
     Dates: start: 20130626, end: 20130628
  5. LEPONEX / CLOZARIL [Suspect]
     Dosage: 100 MG, UNK
     Route: 048
     Dates: start: 20130629, end: 20130630
  6. LEPONEX / CLOZARIL [Suspect]
     Dosage: 125 MG, UNK
     Route: 048
     Dates: start: 20130701, end: 20130702
  7. LEPONEX / CLOZARIL [Suspect]
     Dosage: 150 MG, UNK
     Route: 048
     Dates: start: 20130703, end: 20130706
  8. LEPONEX / CLOZARIL [Suspect]
     Dosage: 175 MG, UNK
     Route: 048
     Dates: start: 20130707, end: 20130708
  9. SETOUS [Concomitant]
     Dosage: 75 MG, UNK
     Route: 048
     Dates: start: 20120731
  10. SETOUS [Concomitant]
     Dosage: 50 MG, UNK
  11. SETOUS [Concomitant]
     Dosage: 25 MG, UNK
     Dates: end: 20130705
  12. ZYPREXA [Concomitant]
     Dosage: 20 MG, UNK
     Dates: start: 20111020
  13. ZYPREXA [Concomitant]
     Dosage: 15 MG, UNK
  14. ZYPREXA [Concomitant]
     Dosage: 05 MG, UNK
     Dates: end: 20130705
  15. DEPAKENE-R [Concomitant]
     Indication: SCHIZOPHRENIA, DISORGANISED TYPE
     Dosage: 800 MG, UNK
     Route: 048
     Dates: start: 20120703, end: 20130707
  16. DORAL [Concomitant]
     Indication: SCHIZOPHRENIA, DISORGANISED TYPE
     Dosage: 20 MG, UNK
     Route: 048
     Dates: start: 20120419, end: 20130627
  17. LANDSEN [Concomitant]
     Indication: SCHIZOPHRENIA, DISORGANISED TYPE
     Dosage: 06 MG, UNK
     Route: 048
     Dates: start: 20111016, end: 20130707
  18. MAGLAX [Concomitant]
     Dosage: 1980 MG, UNK
     Route: 048
     Dates: end: 20130707
  19. YODEL [Concomitant]
     Dosage: 160 MG, UNK
     Route: 048
     Dates: end: 20130707
  20. LIMAS [Concomitant]
     Dosage: 600 MG, UNK
     Route: 048
     Dates: start: 20111122, end: 20130707
  21. ROHYPNOL [Concomitant]
     Indication: SCHIZOPHRENIA, DISORGANISED TYPE
     Dosage: 02 MG, UNK
     Route: 048
     Dates: start: 20130628, end: 20130707

REACTIONS (4)
  - Pyrexia [Not Recovered/Not Resolved]
  - Altered state of consciousness [Unknown]
  - Hypercreatinaemia [Not Recovered/Not Resolved]
  - Blood pressure decreased [Unknown]
